FAERS Safety Report 5594777-X (Version None)
Quarter: 2008Q1

REPORT INFORMATION
  Report Type: 
  Country: None (occurrence: None)
  Receive Date: 20080117
  Receipt Date: 20080111
  Transmission Date: 20080703
  Serious: Yes (Other)
  Sender: FDA-Public Use
  Company Number: A0700563A

PATIENT
  Age: 56 Year
  Sex: Male
  Weight: 68.2 kg

DRUGS (2)
  1. VALTREX [Suspect]
     Indication: HERPES ZOSTER
     Dosage: 1G THREE TIMES PER DAY
     Route: 048
     Dates: start: 20071206, end: 20071211
  2. MICARDIS [Concomitant]
     Indication: HYPERTENSION
     Dosage: 120MG PER DAY
     Route: 048

REACTIONS (9)
  - NAUSEA [None]
  - NEPHROCALCINOSIS [None]
  - PAIN [None]
  - PROSTATOMEGALY [None]
  - RENAL COLIC [None]
  - RENAL CYST [None]
  - RENAL TUBULAR NECROSIS [None]
  - URINE OUTPUT DECREASED [None]
  - VOMITING [None]
